FAERS Safety Report 19381624 (Version 13)
Quarter: 2022Q2

REPORT INFORMATION
  Report Type: Report from Study
  Country: CA (occurrence: CA)
  Receive Date: 20210607
  Receipt Date: 20220426
  Transmission Date: 20220720
  Serious: Yes (Other)
  Sender: FDA-Public Use
  Company Number: CA-BAUSCH-BL-2020-028679

PATIENT

DRUGS (23)
  1. CONTRAVE [Suspect]
     Active Substance: BUPROPION HYDROCHLORIDE\NALTREXONE HYDROCHLORIDE
     Indication: Weight control
     Dosage: 90/8 MG, FIRST ATTEMPT 11/MAR/2020 TO 23/MAR/2020 (APPROXIMATELY) (1 DOSAGE FORMS, 1 IN 1 D)
     Route: 048
     Dates: start: 202003, end: 202003
  2. CONTRAVE [Suspect]
     Active Substance: BUPROPION HYDROCHLORIDE\NALTREXONE HYDROCHLORIDE
     Dosage: 90/8 MG, FIRST ATTEMPT (1 DOSAGE FORMS,1 IN 12 HR)
     Route: 048
     Dates: start: 202003, end: 202003
  3. CONTRAVE [Suspect]
     Active Substance: BUPROPION HYDROCHLORIDE\NALTREXONE HYDROCHLORIDE
     Dosage: 90/8 MG, TILL APPROXIMATELY 23/AUG/2020 (1 IN 12 HR)
     Route: 048
     Dates: start: 202003, end: 202008
  4. CONTRAVE [Suspect]
     Active Substance: BUPROPION HYDROCHLORIDE\NALTREXONE HYDROCHLORIDE
     Dosage: 90/8 MG (1 DOSAGE FORMS, 1 IN 1 D)
     Route: 048
     Dates: start: 20200906, end: 20200912
  5. CONTRAVE [Suspect]
     Active Substance: BUPROPION HYDROCHLORIDE\NALTREXONE HYDROCHLORIDE
     Dosage: 90/8 MG, SECOND ATTEMPT (1 DOSAGE FORMS, 1 IN 12 HR)
     Route: 048
     Dates: start: 20200913, end: 202009
  6. CONTRAVE [Suspect]
     Active Substance: BUPROPION HYDROCHLORIDE\NALTREXONE HYDROCHLORIDE
     Dosage: 90/8 MG, TAKING 2 TABS ON EVEN DAYS AND 3 TABS ON ODD DAYS
     Route: 048
     Dates: start: 20200928, end: 2020
  7. CONTRAVE [Suspect]
     Active Substance: BUPROPION HYDROCHLORIDE\NALTREXONE HYDROCHLORIDE
     Dosage: 90/8 MG (1 DOSAGE FORMS, 1 IN 12 HR)
     Route: 048
     Dates: start: 2020, end: 2020
  8. CONTRAVE [Suspect]
     Active Substance: BUPROPION HYDROCHLORIDE\NALTREXONE HYDROCHLORIDE
     Dosage: 90/8 MG, ALTERNATING BETWEEN 2 TABS/DAY AND 3TABS/DAY, STOPPED ON APPROXIMATELY 20/DEC/2020
     Route: 048
     Dates: start: 2020, end: 20201224
  9. CONTRAVE [Suspect]
     Active Substance: BUPROPION HYDROCHLORIDE\NALTREXONE HYDROCHLORIDE
     Dosage: 90/8 MG
     Route: 048
     Dates: end: 20210105
  10. CONTRAVE [Suspect]
     Active Substance: BUPROPION HYDROCHLORIDE\NALTREXONE HYDROCHLORIDE
     Dosage: 90/8 MG 1 TABLET EVERY MORNING
     Route: 048
     Dates: start: 20210121, end: 20210220
  11. CONTRAVE [Suspect]
     Active Substance: BUPROPION HYDROCHLORIDE\NALTREXONE HYDROCHLORIDE
     Dosage: 90/8 MG TWICE A DAY (1 DOSAGE FORMS, 1 IN 12 HR)
     Route: 048
     Dates: start: 20210221, end: 20210307
  12. CONTRAVE [Suspect]
     Active Substance: BUPROPION HYDROCHLORIDE\NALTREXONE HYDROCHLORIDE
     Dosage: TWO TABLET IN THE MORNING AND ONE TABLET IN THE EVENING ALTERNATING WITH 1 TABLET TWICE DAILY
     Route: 048
     Dates: start: 20210308, end: 202103
  13. CONTRAVE [Suspect]
     Active Substance: BUPROPION HYDROCHLORIDE\NALTREXONE HYDROCHLORIDE
     Dosage: TWO TABLET IN THE MORNING AND ONE TABLET IN THE EVENING ALTERNATING WITH 1 TABLET TWICE DAILY
     Route: 048
     Dates: start: 202103, end: 2021
  14. CONTRAVE [Suspect]
     Active Substance: BUPROPION HYDROCHLORIDE\NALTREXONE HYDROCHLORIDE
     Dosage: 3 DOSAGE FORMS (1 IN 12 HR)
     Route: 048
     Dates: start: 20210601, end: 2021
  15. CONTRAVE [Suspect]
     Active Substance: BUPROPION HYDROCHLORIDE\NALTREXONE HYDROCHLORIDE
     Dosage: 90/8 MG, FOURTH ATTEMPT (1 DOSAGE FORMS, 1 IN 1 D)
     Route: 048
     Dates: start: 20210913, end: 20210919
  16. CONTRAVE [Suspect]
     Active Substance: BUPROPION HYDROCHLORIDE\NALTREXONE HYDROCHLORIDE
     Dosage: 90/8 MG, FOURTH ATTEMPT (1 DOSAGE FORMS, 1 IN 12 HR)
     Route: 048
     Dates: start: 20210920, end: 20210926
  17. CONTRAVE [Suspect]
     Active Substance: BUPROPION HYDROCHLORIDE\NALTREXONE HYDROCHLORIDE
     Dosage: 90/8 MG, FOURTH ATTEMPT, 2TAB QAM, 1TAB QPM (1 IN 12 HR)
     Route: 048
     Dates: start: 20210927, end: 202110
  18. CONTRAVE [Suspect]
     Active Substance: BUPROPION HYDROCHLORIDE\NALTREXONE HYDROCHLORIDE
     Dosage: 90/8 MG, FIFTH ATTEMPT 1TAB QAM
     Route: 048
     Dates: start: 20211025, end: 20211031
  19. CONTRAVE [Suspect]
     Active Substance: BUPROPION HYDROCHLORIDE\NALTREXONE HYDROCHLORIDE
     Dosage: 90/8 MG, FIFTH ATTEMPT 1TAB QAM, 1TAB QPM
     Route: 048
     Dates: start: 20211101, end: 202111
  20. CONTRAVE [Suspect]
     Active Substance: BUPROPION HYDROCHLORIDE\NALTREXONE HYDROCHLORIDE
     Dosage: 90/8 MG, 2ND MONTH, 3 TABS/DAY, 2 TABS IN MORNING, 1TABS IN EVENING
     Route: 048
     Dates: start: 20211122
  21. JARDIANCE [Suspect]
     Active Substance: EMPAGLIFLOZIN
     Indication: Diabetes mellitus
     Dosage: SINCE MORE THAN A YEAR, DAILY (25 MG)
     Route: 048
  22. GLICLAZIDE [Concomitant]
     Active Substance: GLICLAZIDE
     Indication: Weight control
     Dosage: 30 MG (TWO TABLETS) SINCE MORE THAN A YEAR (30 MG, 1 IN 1 D)
     Route: 048
  23. GLICLAZIDE [Concomitant]
     Active Substance: GLICLAZIDE
     Indication: Weight control
     Dosage: UNK

REACTIONS (22)
  - Foot fracture [Recovered/Resolved]
  - Oesophageal food impaction [Recovered/Resolved]
  - Glycosylated haemoglobin increased [Recovered/Resolved]
  - Head discomfort [Recovered/Resolved]
  - Speech disorder [Recovered/Resolved]
  - Thinking abnormal [Recovered/Resolved]
  - Limb injury [Recovered/Resolved]
  - Road traffic accident [Recovered/Resolved]
  - Tooth fracture [Recovered/Resolved]
  - Decreased appetite [Recovered/Resolved]
  - Depression [Recovered/Resolved]
  - Toothache [Recovered/Resolved]
  - Arthralgia [Recovered/Resolved]
  - Stress [Recovered/Resolved]
  - Memory impairment [Recovered/Resolved]
  - Agitation [Recovered/Resolved]
  - Anxiety [Recovered/Resolved]
  - Feeling abnormal [Recovered/Resolved]
  - Insomnia [Recovered/Resolved]
  - Drug titration error [Unknown]
  - Product dose omission in error [Unknown]
  - Therapy cessation [Unknown]

NARRATIVE: CASE EVENT DATE: 20200101
